FAERS Safety Report 20734235 (Version 6)
Quarter: 2022Q3

REPORT INFORMATION
  Report Type: Report from Study
  Country: CN (occurrence: CN)
  Receive Date: 20220421
  Receipt Date: 20220923
  Transmission Date: 20221027
  Serious: Yes (Hospitalization, Other)
  Sender: FDA-Public Use
  Company Number: CN-TAKEDA-2022TUS026374

PATIENT
  Age: 38 Year
  Sex: Female
  Weight: 73 kg

DRUGS (12)
  1. VEDOLIZUMAB [Suspect]
     Active Substance: VEDOLIZUMAB
     Indication: Colitis ulcerative
     Dosage: 300 MILLIGRAM
     Route: 042
     Dates: start: 20220323
  2. POTASSIUM CHLORIDE [Concomitant]
     Active Substance: POTASSIUM CHLORIDE
     Indication: Adverse event
     Dosage: 1.5 GRAM, QD
     Route: 042
     Dates: start: 20220326, end: 20220404
  3. LEVOFLOXACIN [Concomitant]
     Active Substance: LEVOFLOXACIN
     Indication: Adverse event
     Dosage: 0.5 GRAM, QD
     Route: 042
     Dates: start: 20220326, end: 20220402
  4. ESOMEPRAZOLE SODIUM [Concomitant]
     Active Substance: ESOMEPRAZOLE SODIUM
     Indication: Adverse event
     Dosage: 40 MILLIGRAM, QD
     Route: 042
     Dates: start: 20220326, end: 20220402
  5. METRONIDAZOLE [Concomitant]
     Active Substance: METRONIDAZOLE
     Indication: Adverse event
     Dosage: 0.5 GRAM, QD
     Route: 042
     Dates: start: 20220328, end: 20220404
  6. VITAMIN B6 [Concomitant]
     Active Substance: PYRIDOXINE HYDROCHLORIDE
     Indication: Adverse event
     Dosage: 50 MILLIGRAM, QD
     Route: 042
     Dates: start: 20220331, end: 20220404
  7. ONDANSETRON [Concomitant]
     Active Substance: ONDANSETRON
     Indication: Adverse event
     Dosage: 8 MILLIGRAM, QD
     Route: 042
     Dates: start: 20220327, end: 20220327
  8. TRIMEBUTINE MALEATE [Concomitant]
     Active Substance: TRIMEBUTINE MALEATE
     Indication: Gastric disorder
     Dosage: 0.2 GRAM, TID
     Route: 048
     Dates: start: 20220329
  9. GLYCERIN [Concomitant]
     Active Substance: GLYCERIN
     Indication: Adverse event
     Dosage: 20 MILLILITER, QD
     Dates: start: 20220329, end: 20220329
  10. HYDROTALCITE [Concomitant]
     Active Substance: HYDROTALCITE
     Indication: Adverse event
     Dosage: 1000 MILLIGRAM, TID
     Route: 048
     Dates: start: 20220331, end: 20220405
  11. MESALAMINE [Concomitant]
     Active Substance: MESALAMINE
     Indication: Adverse event
     Dosage: 0.5 GRAM, BID
     Dates: start: 20220403, end: 20220405
  12. MESALAMINE [Concomitant]
     Active Substance: MESALAMINE
     Dosage: 200 MILLIGRAM
     Route: 048
     Dates: start: 20211111

REACTIONS (10)
  - Haematochezia [Recovered/Resolved]
  - Hypokalaemia [Recovered/Resolved]
  - Faecal calprotectin increased [Not Recovered/Not Resolved]
  - Occult blood positive [Recovered/Resolved]
  - Pus in stool [Recovered/Resolved]
  - White blood cells stool [Not Recovered/Not Resolved]
  - Hyponatraemia [Not Recovered/Not Resolved]
  - Hyperlipidaemia [Not Recovered/Not Resolved]
  - Leukocytosis [Not Recovered/Not Resolved]
  - Vomiting [Recovered/Resolved]

NARRATIVE: CASE EVENT DATE: 20220326
